FAERS Safety Report 10222622 (Version 1)
Quarter: 2014Q2

REPORT INFORMATION
  Report Type: Spontaneous
  Country: FR (occurrence: FR)
  Receive Date: 20140606
  Receipt Date: 20140606
  Transmission Date: 20141212
  Serious: Yes (Life-Threatening, Hospitalization)
  Sender: FDA-Public Use
  Company Number: FR-PFIZER INC-2014152261

PATIENT
  Age: 39 Year
  Sex: Female

DRUGS (4)
  1. TRINORDIOL [Suspect]
     Indication: ORAL CONTRACEPTION
     Dosage: UNK
     Route: 048
     Dates: end: 201405
  2. ZOLMITRIPTAN [Concomitant]
     Indication: MIGRAINE
  3. LAROXYL [Concomitant]
     Indication: MIGRAINE
  4. METOPROLOL [Concomitant]
     Indication: HYPERTENSION

REACTIONS (5)
  - Hepatic adenoma [Not Recovered/Not Resolved]
  - Hepatic haemorrhage [Not Recovered/Not Resolved]
  - Hepatic haematoma [Not Recovered/Not Resolved]
  - Peritoneal haemorrhage [Recovered/Resolved]
  - Shock haemorrhagic [Recovered/Resolved]
